FAERS Safety Report 19500147 (Version 2)
Quarter: 2021Q3

REPORT INFORMATION
  Report Type: Report from Study
  Country: US (occurrence: US)
  Receive Date: 20210707
  Receipt Date: 20210819
  Transmission Date: 20211014
  Serious: Yes (Hospitalization, Other)
  Sender: FDA-Public Use
  Company Number: US-KYOWAKIRIN-2021BKK011513

PATIENT

DRUGS (1)
  1. GRANISETRON [Suspect]
     Active Substance: GRANISETRON
     Indication: PRODUCT USED FOR UNKNOWN INDICATION
     Dosage: UNK
     Route: 061
     Dates: start: 20210512

REACTIONS (4)
  - Vaginal haemorrhage [Unknown]
  - Hospitalisation [Not Recovered/Not Resolved]
  - Neoplasm [Unknown]
  - Nausea [Unknown]

NARRATIVE: CASE EVENT DATE: 20210620
